FAERS Safety Report 6537879-3 (Version None)
Quarter: 2010Q1

REPORT INFORMATION
  Report Type: 
  Country: None (occurrence: None)
  Receive Date: 20100112
  Receipt Date: 20100112
  Transmission Date: 20100710
  Serious: Yes (Other)
  Sender: FDA-Public Use
  Company Number: None

PATIENT
  Sex: Male
  Weight: 81.6475 kg

DRUGS (1)
  1. FOSAMAX [Suspect]
     Indication: OSTEOPENIA
     Dosage: 70MG ONE PER WEEK PO
     Route: 048
     Dates: start: 19990110, end: 20060110

REACTIONS (2)
  - IMPAIRED HEALING [None]
  - OSTEONECROSIS [None]
